FAERS Safety Report 25632196 (Version 1)
Quarter: 2025Q3

REPORT INFORMATION
  Report Type: Report from Study
  Country: US (occurrence: US)
  Receive Date: 20250801
  Receipt Date: 20250801
  Transmission Date: 20251020
  Serious: No
  Sender: SUNOVION
  Company Number: US-SUMITOMO PHARMA SWITZERLAND GMBH-2025SPA009648

PATIENT

DRUGS (7)
  1. ORGOVYX [Suspect]
     Active Substance: RELUGOLIX
     Indication: Prostate cancer
     Route: 048
  2. ORGOVYX [Suspect]
     Active Substance: RELUGOLIX
     Indication: Metastases to lymph nodes
     Route: 048
  3. ASPIRIN [Concomitant]
     Active Substance: ASPIRIN
  4. ATORVASTATIN [Concomitant]
     Active Substance: ATORVASTATIN
  5. CALQUENCE [Concomitant]
     Active Substance: ACALABRUTINIB
  6. COLCHICINE [Concomitant]
     Active Substance: COLCHICINE
  7. XTANDI [Concomitant]
     Active Substance: ENZALUTAMIDE

REACTIONS (3)
  - Dizziness [Unknown]
  - Fatigue [Unknown]
  - Hot flush [Unknown]
